FAERS Safety Report 8603460 (Version 2)
Quarter: 2014Q1

REPORT INFORMATION
  Report Type: Spontaneous
  Country: US (occurrence: None)
  Receive Date: 20120323
  Receipt Date: 20130305
  Transmission Date: 20141002
  Serious: Yes (Hospitalization)
  Sender: FDA-Public Use
  Company Number: 163-21880-11020834

PATIENT
  Age: 80 Year
  Sex: Female

DRUGS (2)
  1. REVLIMID [Suspect]
     Indication: PLASMA CELL MYELOMA
     Dosage: 5 MG, 21 IN 28 D, PO
     Route: 048
     Dates: start: 20080211, end: 20110216
  2. PLAVIX (CLOPIDOGREL SULFATE) [Concomitant]

REACTIONS (3)
  - Pneumonia [None]
  - Chronic obstructive pulmonary disease [None]
  - Bronchitis [None]
